FAERS Safety Report 5899218-0 (Version None)
Quarter: 2008Q3

REPORT INFORMATION
  Report Type: 
  Country: None (occurrence: None)
  Receive Date: 20080925
  Receipt Date: 20080910
  Transmission Date: 20090109
  Serious: No
  Sender: FDA-Public Use
  Company Number: US-B.I. PHARMACEUTICALS,INC./RIDGEFIELD-2008-BP-14356BP

PATIENT
  Age: 65 Year
  Sex: Male

DRUGS (6)
  1. FLOMAX [Suspect]
     Indication: BENIGN PROSTATIC HYPERPLASIA
     Dosage: .4MG
     Route: 048
     Dates: start: 20080801
  2. METOPROLOL TARTRATE [Concomitant]
     Indication: HYPERTENSION
  3. VICODIN [Concomitant]
     Indication: BACK PAIN
  4. LISINOPRIL [Concomitant]
     Indication: HYPERTENSION
  5. LISINOPRIL [Concomitant]
     Indication: CARDIAC DISORDER
  6. LORAZEPAM [Concomitant]

REACTIONS (2)
  - DIZZINESS [None]
  - HEADACHE [None]
